FAERS Safety Report 13321127 (Version 1)
Quarter: 2017Q1

REPORT INFORMATION
  Report Type: Spontaneous
  Country: US (occurrence: US)
  Receive Date: 20170310
  Receipt Date: 20170310
  Transmission Date: 20170428
  Serious: Yes (Disabling, Other)
  Sender: FDA-Public Use
  Company Number: None

PATIENT
  Age: 58 Year
  Sex: Male
  Weight: 102.6 kg

DRUGS (4)
  1. PHENTERMINE. [Concomitant]
     Active Substance: PHENTERMINE
  2. RAPAFLO [Suspect]
     Active Substance: SILODOSIN
     Indication: PRODUCT USED FOR UNKNOWN INDICATION
     Dosage: ?          QUANTITY:7 CAPSULE(S);?
     Route: 048
     Dates: start: 20170303, end: 20170307
  3. DAILY VITAMIN [Concomitant]
     Active Substance: VITAMINS
  4. POTASSIUM SUPPLEMENT [Concomitant]
     Active Substance: POTASSIUM

REACTIONS (2)
  - Unevaluable event [None]
  - Product label issue [None]

NARRATIVE: CASE EVENT DATE: 20170304
